FAERS Safety Report 9282422 (Version 3)
Quarter: 2013Q3

REPORT INFORMATION
  Report Type: Spontaneous
  Country: CA (occurrence: CA)
  Receive Date: 20130510
  Receipt Date: 20130830
  Transmission Date: 20140515
  Serious: Yes (Hospitalization)
  Sender: FDA-Public Use
  Company Number: CA-AMGEN-CANSP2013032393

PATIENT
  Age: 44 Year
  Sex: Female
  Weight: 80 kg

DRUGS (1)
  1. ARANESP [Suspect]
     Indication: RENAL FAILURE CHRONIC
     Dosage: 150 MUG, UNK
     Route: 042

REACTIONS (2)
  - Post procedural infection [Recovered/Resolved]
  - Diverticulitis [Recovered/Resolved]
